FAERS Safety Report 5015241-2 (Version None)
Quarter: 2006Q2

REPORT INFORMATION
  Report Type: 
  Country: None (occurrence: None)
  Receive Date: 20060426
  Receipt Date: 20050914
  Transmission Date: 20061013
  Serious: No
  Sender: FDA-Public Use
  Company Number: US150265

PATIENT

DRUGS (1)
  1. SENSIPAR [Suspect]

REACTIONS (1)
  - BLOOD PARATHYROID HORMONE INCREASED [None]
